FAERS Safety Report 21751926 (Version 1)
Quarter: 2022Q4

REPORT INFORMATION
  Report Type: Report from Study
  Country: US (occurrence: US)
  Receive Date: 20221220
  Receipt Date: 20221220
  Transmission Date: 20230112
  Serious: No
  Sender: FDA-Public Use
  Company Number: US-002147023-NVSC2022US293692

PATIENT
  Sex: Female

DRUGS (1)
  1. KISQALI [Suspect]
     Active Substance: RIBOCICLIB
     Indication: Breast cancer
     Dosage: 300 MG, QW
     Route: 048

REACTIONS (4)
  - Weight decreased [Unknown]
  - Oral pain [Unknown]
  - Vomiting [Unknown]
  - Incorrect dose administered [Unknown]
